FAERS Safety Report 15221780 (Version 3)
Quarter: 2019Q3

REPORT INFORMATION
  Report Type: Spontaneous
  Country: US (occurrence: US)
  Receive Date: 20180731
  Receipt Date: 20190808
  Transmission Date: 20191004
  Serious: Yes (Other)
  Sender: FDA-Public Use
  Company Number: US-VIFOR (INTERNATIONAL) INC.-VIT-2018-06985

PATIENT
  Age: 81 Year
  Sex: Male

DRUGS (12)
  1. VELTASSA [Suspect]
     Active Substance: PATIROMER
     Route: 048
     Dates: start: 20160524
  2. METFORMIN HCL [Concomitant]
     Active Substance: METFORMIN HYDROCHLORIDE
  3. VELTASSA [Suspect]
     Active Substance: PATIROMER
     Indication: HYPERKALAEMIA
     Route: 048
  4. TRAVATAN Z [Concomitant]
     Active Substance: TRAVOPROST
  5. ASPIRIN. [Concomitant]
     Active Substance: ASPIRIN
  6. CORICIDIN HBP CHEST CONGESTION AND COUGH [Concomitant]
     Active Substance: DEXTROMETHORPHAN HYDROBROMIDE\GUAIFENESIN
  7. AMLODIPINE BESYLATE. [Concomitant]
     Active Substance: AMLODIPINE BESYLATE
  8. VITAMIN D3 [Concomitant]
     Active Substance: CHOLECALCIFEROL
  9. WARFARIN SODIUM. [Concomitant]
     Active Substance: WARFARIN SODIUM
  10. CALCITRIOL. [Concomitant]
     Active Substance: CALCITRIOL
  11. ATORVASTATIN CALCIUM. [Concomitant]
     Active Substance: ATORVASTATIN CALCIUM
  12. LISINOPRIL. [Concomitant]
     Active Substance: LISINOPRIL

REACTIONS (7)
  - Hypersensitivity [Unknown]
  - Lower respiratory tract infection [Unknown]
  - Rhinorrhoea [Unknown]
  - Off label use [Unknown]
  - Skin hypertrophy [Unknown]
  - Cough [Unknown]
  - Skin mass [Unknown]

NARRATIVE: CASE EVENT DATE: 201907
